FAERS Safety Report 8370021-5 (Version None)
Quarter: 2012Q2

REPORT INFORMATION
  Report Type: 
  Country: None (occurrence: None)
  Receive Date: 20120518
  Receipt Date: 20120509
  Transmission Date: 20120825
  Serious: Yes (Other)
  Sender: FDA-Public Use
  Company Number: US-JNJFOC-20120509720

PATIENT
  Age: 69 Year
  Sex: Male

DRUGS (6)
  1. FLOMAX [Concomitant]
     Indication: PROSTATITIS
     Route: 065
  2. UNKNOWN MEDICATION [Concomitant]
     Indication: PROSTATITIS
     Route: 065
  3. AVODART [Concomitant]
     Indication: PROSTATITIS
     Route: 065
  4. BENADRYL [Suspect]
     Indication: ARTHROPOD STING
     Route: 048
  5. BENADRYL [Suspect]
     Indication: SINUS DISORDER
     Route: 048
  6. ANTIBIOTICS NOS [Concomitant]
     Indication: PROSTATITIS
     Route: 065

REACTIONS (6)
  - SOMNOLENCE [None]
  - OFF LABEL USE [None]
  - RESTLESSNESS [None]
  - PROSTATITIS [None]
  - CONVULSION [None]
  - POOR QUALITY SLEEP [None]
